FAERS Safety Report 6404835-5 (Version None)
Quarter: 2009Q4

REPORT INFORMATION
  Report Type: 
  Country: None (occurrence: None)
  Receive Date: 20091016
  Receipt Date: 20091008
  Transmission Date: 20100525
  Serious: Yes (Hospitalization)
  Sender: FDA-Public Use
  Company Number: DE-AMGEN-US361230

PATIENT
  Sex: Male
  Weight: 75 kg

DRUGS (4)
  1. ENBREL [Suspect]
     Indication: PSORIATIC ARTHROPATHY
     Route: 058
     Dates: start: 20070101
  2. ALLOPURINOL [Concomitant]
     Indication: GOUTY ARTHRITIS
     Route: 048
     Dates: start: 20041001
  3. BLOPRESS [Concomitant]
     Indication: HYPERTENSION
     Route: 048
     Dates: start: 20081101
  4. METHOTREXATE [Concomitant]
     Indication: PSORIATIC ARTHROPATHY
     Route: 058
     Dates: start: 20020201

REACTIONS (2)
  - LACUNAR INFARCTION [None]
  - REVERSIBLE ISCHAEMIC NEUROLOGICAL DEFICIT [None]
